FAERS Safety Report 6683372-7 (Version None)
Quarter: 2010Q2

REPORT INFORMATION
  Report Type: 
  Country: None (occurrence: None)
  Receive Date: 20100415
  Receipt Date: 20100405
  Transmission Date: 20101027
  Serious: Yes (Hospitalization, Other)
  Sender: FDA-Public Use
  Company Number: US-BAXTER-2010BH008849

PATIENT
  Age: 72 Year
  Sex: Male

DRUGS (1)
  1. HEPARIN SODIUM 1,000 UNITS AND SODIUM CHLORIDE 0.9% [Suspect]
     Indication: STENT PLACEMENT
     Route: 065
     Dates: start: 20091123

REACTIONS (2)
  - GANGRENE [None]
  - HYPERSENSITIVITY [None]
